FAERS Safety Report 16329060 (Version 1)
Quarter: 2019Q2

REPORT INFORMATION
  Report Type: Report from Study
  Country: None (occurrence: US)
  Receive Date: 20190519
  Receipt Date: 20190519
  Transmission Date: 20190711
  Serious: Yes (Other)
  Sender: FDA-Public Use
  Company Number: US-ABBVIE-19K-163-2785623-00

PATIENT
  Age: 53 Year
  Sex: Female

DRUGS (1)
  1. HUMIRA [Suspect]
     Active Substance: ADALIMUMAB
     Indication: RHEUMATOID ARTHRITIS
     Route: 058
     Dates: start: 20180906

REACTIONS (4)
  - Thyroid neoplasm [Unknown]
  - Laryngeal oedema [Unknown]
  - Dysphonia [Unknown]
  - Thyroid cyst [Unknown]

NARRATIVE: CASE EVENT DATE: 201903
